FAERS Safety Report 11107646 (Version 15)
Quarter: 2015Q4

REPORT INFORMATION
  Report Type: Report from Study
  Country: US (occurrence: US)
  Receive Date: 20150512
  Receipt Date: 20151203
  Transmission Date: 20160304
  Serious: Yes (Death, Hospitalization, Other)
  Sender: FDA-Public Use
  Company Number: US-ALEXION-A201501577

PATIENT
  Sex: Female

DRUGS (2)
  1. SOLIRIS [Suspect]
     Active Substance: ECULIZUMAB
     Indication: HAEMOLYTIC URAEMIC SYNDROME
     Dosage: 900 MG, Q2W
     Route: 042
  2. SOLIRIS [Suspect]
     Active Substance: ECULIZUMAB
     Dosage: 1200 MG, UNK
     Route: 042

REACTIONS (25)
  - Malaise [Unknown]
  - Abdominal pain upper [Unknown]
  - Metastatic neoplasm [Unknown]
  - Pain [Unknown]
  - Pericardial effusion [Unknown]
  - Blood pressure increased [Unknown]
  - Oedema [Unknown]
  - Accident [Unknown]
  - Unevaluable event [Unknown]
  - Blood pressure increased [Not Recovered/Not Resolved]
  - Dyspnoea [Unknown]
  - Pulmonary oedema [Unknown]
  - Eating disorder [Unknown]
  - Unevaluable event [Not Recovered/Not Resolved]
  - Vomiting [Unknown]
  - Abdominal pain upper [Unknown]
  - Vomiting [Not Recovered/Not Resolved]
  - Pain in extremity [Unknown]
  - Contusion [Unknown]
  - Death [Fatal]
  - Metastases to stomach [Unknown]
  - Nausea [Unknown]
  - Vomiting [Not Recovered/Not Resolved]
  - Arthralgia [Unknown]
  - Cystitis [Unknown]

NARRATIVE: CASE EVENT DATE: 20150429
